FAERS Safety Report 6124081-2 (Version None)
Quarter: 2009Q1

REPORT INFORMATION
  Report Type: 
  Country: None (occurrence: None)
  Receive Date: 20090318
  Receipt Date: 20090318
  Transmission Date: 20090719
  Serious: Yes (Other)
  Sender: FDA-Public Use
  Company Number: None

PATIENT
  Age: 48 Year
  Sex: Female
  Weight: 66.6788 kg

DRUGS (1)
  1. CIPRO [Suspect]
     Indication: CYSTITIS
     Dosage: 1 TAB BID PO
     Route: 048
     Dates: start: 20090215, end: 20090217

REACTIONS (6)
  - ARTHRALGIA [None]
  - JOINT STIFFNESS [None]
  - MOVEMENT DISORDER [None]
  - MUSCULOSKELETAL PAIN [None]
  - MUSCULOSKELETAL STIFFNESS [None]
  - PAIN IN EXTREMITY [None]
